FAERS Safety Report 18537524 (Version 1)
Quarter: 2020Q4

REPORT INFORMATION
  Report Type: Spontaneous
  Country: CA (occurrence: CA)
  Receive Date: 20201124
  Receipt Date: 20201124
  Transmission Date: 20210114
  Serious: Yes (Hospitalization)
  Sender: FDA-Public Use
  Company Number: CA-TEVA-2020-CA-1851588

PATIENT
  Age: 61 Year
  Sex: Male

DRUGS (6)
  1. PREDNISONE. [Suspect]
     Active Substance: PREDNISONE
     Dosage: 15 MILLIGRAM DAILY;
     Route: 048
  2. SALMETEROL [Concomitant]
     Active Substance: SALMETEROL
     Indication: ASTHMA
     Dosage: 200 MICROGRAM DAILY;
     Route: 065
  3. PREDNISONE. [Suspect]
     Active Substance: PREDNISONE
     Indication: ASTHMA
     Dosage: 10 MILLIGRAM DAILY;
     Route: 048
  4. FLUTICASONE PROPIONATE. [Suspect]
     Active Substance: FLUTICASONE PROPIONATE
     Indication: ASTHMA
     Dosage: 2000 MICROGRAM DAILY;
     Route: 055
  5. BENRALIZUMAB. [Suspect]
     Active Substance: BENRALIZUMAB
     Indication: ASTHMA
     Route: 065
     Dates: start: 201808
  6. MEPOLIZUMAB [Suspect]
     Active Substance: MEPOLIZUMAB
     Indication: ASTHMA
     Route: 065
     Dates: start: 2017, end: 201808

REACTIONS (5)
  - Asthma [Recovering/Resolving]
  - Pneumonia pneumococcal [Recovering/Resolving]
  - Weight decreased [Recovering/Resolving]
  - Septic shock [Recovering/Resolving]
  - Pseudomonas infection [Recovering/Resolving]
